FAERS Safety Report 7964749-6 (Version None)
Quarter: 2011Q4

REPORT INFORMATION
  Report Type: 
  Country: None (occurrence: None)
  Receive Date: 20111208
  Receipt Date: 20111205
  Transmission Date: 20120403
  Serious: Yes (Hospitalization, Disabling, Other)
  Sender: FDA-Public Use
  Company Number: US-PFIZER INC-2011153147

PATIENT
  Sex: Male

DRUGS (1)
  1. CHANTIX [Suspect]
     Indication: SMOKING CESSATION THERAPY
     Dosage: UNK
     Route: 048
     Dates: start: 20080501, end: 20080901

REACTIONS (11)
  - LOWER LIMB FRACTURE [None]
  - DEPRESSION [None]
  - LOSS OF CONSCIOUSNESS [None]
  - PATELLA FRACTURE [None]
  - CONVULSION [None]
  - INJURY [None]
  - ANKLE FRACTURE [None]
  - FALL [None]
  - NERVE INJURY [None]
  - PERONEAL NERVE PALSY [None]
  - PERIPHERAL ISCHAEMIA [None]
